FAERS Safety Report 4396166-2 (Version None)
Quarter: 2004Q3

REPORT INFORMATION
  Report Type: 
  Country: None (occurrence: None)
  Receive Date: 20040713
  Receipt Date: 20040607
  Transmission Date: 20050211
  Serious: Yes (Hospitalization)
  Sender: FDA-Public Use
  Company Number: PHRM2004FR02016

PATIENT
  Age: 39 Year
  Sex: Female

DRUGS (10)
  1. TRILEPTAL [Suspect]
     Route: 048
     Dates: start: 20040226, end: 20040228
  2. TRINORDIOL [Suspect]
     Route: 048
     Dates: start: 20040110, end: 20040120
  3. OMEPRAZOLE [Suspect]
     Route: 048
     Dates: start: 20020211
  4. PAROXETINE HCL [Suspect]
     Route: 048
     Dates: start: 20040223
  5. ASPEGIC 325 [Concomitant]
  6. IMOVANE [Concomitant]
  7. LEXOMIL [Concomitant]
  8. CORTANCYL [Concomitant]
  9. PAROXETINE HCL [Concomitant]
  10. ACETAMINOPHEN [Concomitant]

REACTIONS (7)
  - ABDOMINAL PAIN [None]
  - ASCITES [None]
  - CHOLESTASIS [None]
  - HAIR COLOUR CHANGES [None]
  - HEPATOMEGALY [None]
  - HYPOTENSION [None]
  - IRON METABOLISM DISORDER [None]
